FAERS Safety Report 4450519-2 (Version None)
Quarter: 2004Q3

REPORT INFORMATION
  Report Type: 
  Country: None (occurrence: None)
  Receive Date: 20040913
  Receipt Date: 20040503
  Transmission Date: 20050211
  Serious: No
  Sender: FDA-Public Use
  Company Number: 2004-BP-02608BP

PATIENT
  Age: 84 Year
  Sex: Female

DRUGS (5)
  1. SPIRIVA [Suspect]
     Indication: ASTHMA
     Dosage: 1 PUFF (18 MCG, 1 PUFF OD), IH
     Route: 055
     Dates: start: 20040301, end: 20040301
  2. COUMADIN [Concomitant]
  3. VENTOLIN [Concomitant]
  4. ADVAIR (SERETIDE MITE) [Concomitant]
  5. FOSAMAX [Concomitant]

REACTIONS (4)
  - DIZZINESS [None]
  - DRUG INEFFECTIVE [None]
  - FEELING ABNORMAL [None]
  - THERAPEUTIC RESPONSE DECREASED [None]
